FAERS Safety Report 6702554-9 (Version None)
Quarter: 2010Q2

REPORT INFORMATION
  Report Type: 
  Country: None (occurrence: None)
  Receive Date: 20100429
  Receipt Date: 20100415
  Transmission Date: 20101027
  Serious: Yes (Hospitalization)
  Sender: FDA-Public Use
  Company Number: US-ELI_LILLY_AND_COMPANY-US201004006087

PATIENT
  Sex: Female

DRUGS (8)
  1. FORTEO [Suspect]
     Indication: OSTEOPOROSIS
     Dosage: 20 UG, UNK
  2. EFFEXOR [Concomitant]
  3. KLONOPIN [Concomitant]
  4. ZEGERID [Concomitant]
  5. ABILIFY [Concomitant]
  6. RISPERIDONE [Concomitant]
  7. TRAZODONE HCL [Concomitant]
  8. LEXAPRO [Concomitant]

REACTIONS (11)
  - DECREASED APPETITE [None]
  - FATIGUE [None]
  - GALLBLADDER OPERATION [None]
  - GASTROOESOPHAGEAL REFLUX DISEASE [None]
  - HEART RATE INCREASED [None]
  - HERNIA [None]
  - KNEE ARTHROPLASTY [None]
  - NAUSEA [None]
  - PANIC ATTACK [None]
  - PYREXIA [None]
  - RESTLESSNESS [None]
